FAERS Safety Report 24012905 (Version 1)
Quarter: 2024Q2

REPORT INFORMATION
  Report Type: Spontaneous
  Country: GB (occurrence: GB)
  Receive Date: 20240626
  Receipt Date: 20240626
  Transmission Date: 20240715
  Serious: Yes (Other)
  Sender: FDA-Public Use
  Company Number: None

PATIENT
  Age: 45 Year
  Sex: Male
  Weight: 83 kg

DRUGS (2)
  1. SILDENAFIL [Suspect]
     Active Substance: SILDENAFIL
     Indication: Erectile dysfunction
     Dosage: 50 MILLIGRAM, PRN
     Route: 065
  2. SILDENAFIL [Suspect]
     Active Substance: SILDENAFIL
     Dosage: 50 MILLIGRAM, PRN
     Route: 065

REACTIONS (7)
  - Gastric haemorrhage [Recovered/Resolved]
  - Impaired gastric emptying [Unknown]
  - Gastritis [Unknown]
  - Haemorrhage [Unknown]
  - Faeces discoloured [Unknown]
  - Haemoglobin decreased [Unknown]
  - Vasodilatation [Unknown]

NARRATIVE: CASE EVENT DATE: 20230905
